FAERS Safety Report 14039723 (Version 1)
Quarter: 2017Q4

REPORT INFORMATION
  Report Type: Spontaneous
  Country: MX (occurrence: MX)
  Receive Date: 20171004
  Receipt Date: 20171004
  Transmission Date: 20180321
  Serious: Yes (Hospitalization, Other)
  Sender: FDA-Public Use
  Company Number: MX-BAYER-2017-189181

PATIENT
  Age: 6 Year
  Sex: Male

DRUGS (1)
  1. KOGENATE [Suspect]
     Active Substance: ANTIHEMOPHILIC FACTOR, HUMAN RECOMBINANT
     Indication: FACTOR VIII DEFICIENCY
     Dosage: 750 IU, TIW
     Dates: start: 20131201

REACTIONS (15)
  - Factor VIII inhibition [Not Recovered/Not Resolved]
  - Headache [Recovered/Resolved]
  - Haemarthrosis [Not Recovered/Not Resolved]
  - Haemarthrosis [Not Recovered/Not Resolved]
  - Arthralgia [Not Recovered/Not Resolved]
  - Joint swelling [Not Recovered/Not Resolved]
  - Subdural haematoma [Recovered/Resolved]
  - Head injury [Unknown]
  - Vomiting projectile [Recovered/Resolved]
  - Impaired healing [Not Recovered/Not Resolved]
  - Musculoskeletal discomfort [Not Recovered/Not Resolved]
  - Fall [Unknown]
  - Depressed level of consciousness [Recovered/Resolved]
  - Joint injury [Unknown]
  - Seizure [Unknown]

NARRATIVE: CASE EVENT DATE: 201704
